FAERS Safety Report 25164437 (Version 1)
Quarter: 2025Q2

REPORT INFORMATION
  Report Type: Spontaneous
  Country: US (occurrence: US)
  Receive Date: 20250405
  Receipt Date: 20250405
  Transmission Date: 20250717
  Serious: No
  Sender: SANOFI AVENTIS
  Company Number: US-SA-2025SA096491

PATIENT
  Sex: Male

DRUGS (27)
  1. DUPIXENT [Suspect]
     Active Substance: DUPILUMAB
     Indication: Deep vein thrombosis
     Route: 058
  2. ATORVASTATIN [Concomitant]
     Active Substance: ATORVASTATIN
  3. EPINEPHRINE [Concomitant]
     Active Substance: EPINEPHRINE
  4. TACROLIMUS [Concomitant]
     Active Substance: TACROLIMUS
  5. TRAMADOL HCL [Concomitant]
     Active Substance: TRAMADOL HYDROCHLORIDE
  6. TRIAMCINOLONE [Concomitant]
     Active Substance: TRIAMCINOLONE
  7. VTAMA [Concomitant]
     Active Substance: TAPINAROF
  8. MOUNJARO [Concomitant]
     Active Substance: TIRZEPATIDE
  9. ACETAMINOPHEN [Concomitant]
     Active Substance: ACETAMINOPHEN
  10. ASPIRIN [Concomitant]
     Active Substance: ASPIRIN
  11. ACETAMINOPHEN\DIPHENHYDRAMINE\PHENYLPROPANOLAMINE [Concomitant]
     Active Substance: ACETAMINOPHEN\DIPHENHYDRAMINE\PHENYLPROPANOLAMINE
  12. BENZONATATE [Concomitant]
     Active Substance: BENZONATATE
  13. BUDESONIDE [Concomitant]
     Active Substance: BUDESONIDE
  14. ELIQUIS [Concomitant]
     Active Substance: APIXABAN
  15. GABAPENTIN [Concomitant]
     Active Substance: GABAPENTIN
  16. HUMALOG [Concomitant]
     Active Substance: INSULIN LISPRO
  17. INSULIN NOS [Concomitant]
     Active Substance: INSULIN NOS
  18. LASIX [Concomitant]
     Active Substance: FUROSEMIDE
  19. LISINOPRIL [Concomitant]
     Active Substance: LISINOPRIL
  20. METOPROLOL [Concomitant]
     Active Substance: METOPROLOL
  21. MONTELUKAST [Concomitant]
     Active Substance: MONTELUKAST
  22. ONDANSETRON [Concomitant]
     Active Substance: ONDANSETRON
  23. PANADOL EXTRA [Concomitant]
     Active Substance: ACETAMINOPHEN\CAFFEINE
  24. PANTOPRAZOLE [Concomitant]
     Active Substance: PANTOPRAZOLE
  25. PROMETHAZINE [Concomitant]
     Active Substance: PROMETHAZINE HYDROCHLORIDE
  26. STEGLATRO [Concomitant]
     Active Substance: ERTUGLIFLOZIN PIDOLATE
  27. TIZANIDINE [Concomitant]
     Active Substance: TIZANIDINE

REACTIONS (5)
  - Constipation [Not Recovered/Not Resolved]
  - Lacrimation increased [Not Recovered/Not Resolved]
  - Dry eye [Not Recovered/Not Resolved]
  - Arthralgia [Not Recovered/Not Resolved]
  - Product use in unapproved indication [Unknown]
